FAERS Safety Report 11982432 (Version 2)
Quarter: 2016Q1

REPORT INFORMATION
  Report Type: Spontaneous
  Country: US (occurrence: US)
  Receive Date: 20160201
  Receipt Date: 20160321
  Transmission Date: 20160526
  Serious: No
  Sender: FDA-Public Use
  Company Number: US-009507513-1601USA010718

PATIENT
  Age: 18 Year
  Sex: Female
  Weight: 82.54 kg

DRUGS (4)
  1. NEXPLANON [Suspect]
     Active Substance: ETONOGESTREL
     Indication: CONTRACEPTION
     Dosage: UNK
     Route: 059
     Dates: start: 20130124, end: 20160303
  2. ZYRTEC [Concomitant]
     Active Substance: CETIRIZINE HYDROCHLORIDE
     Dosage: UNK
  3. ABILIFY [Concomitant]
     Active Substance: ARIPIPRAZOLE
     Dosage: UNK
  4. CELONTIN [Concomitant]
     Active Substance: METHSUXIMIDE
     Indication: SEIZURE
     Dosage: 300 MG, BID
     Route: 048
     Dates: start: 200710, end: 201601

REACTIONS (4)
  - Pregnancy with implant contraceptive [Unknown]
  - Weight increased [Unknown]
  - Incorrect drug administration duration [Unknown]
  - Unintended pregnancy [Unknown]

NARRATIVE: CASE EVENT DATE: 20151201
